FAERS Safety Report 20416033 (Version 1)
Quarter: 2022Q1

REPORT INFORMATION
  Report Type: Spontaneous
  Country: US (occurrence: None)
  Receive Date: 20220201
  Receipt Date: 20220201
  Transmission Date: 20220423
  Serious: No
  Sender: FDA-Public Use
  Company Number: None

PATIENT
  Sex: Male

DRUGS (1)
  1. XELJANZ [Suspect]
     Active Substance: TOFACITINIB CITRATE
     Indication: Colitis ulcerative
     Dosage: 5MG TWICE DAILY BY MOUTH?
     Route: 048
     Dates: start: 202005

REACTIONS (5)
  - Arthralgia [None]
  - Fatigue [None]
  - Back pain [None]
  - Arthralgia [None]
  - Arthralgia [None]
